FAERS Safety Report 8449325-3 (Version None)
Quarter: 2012Q2

REPORT INFORMATION
  Report Type: 
  Country: None (occurrence: None)
  Receive Date: 20120619
  Receipt Date: 20120612
  Transmission Date: 20120825
  Serious: Yes (Hospitalization)
  Sender: FDA-Public Use
  Company Number: JP-ABBOTT-12P-087-0943380-00

PATIENT
  Age: 77 Year
  Sex: Female

DRUGS (9)
  1. CLARITHROMYCIN [Suspect]
     Indication: GASTRIC ULCER
  2. CLARITHROMYCIN [Suspect]
     Indication: HELICOBACTER INFECTION
  3. AMOXICILLIN [Suspect]
     Indication: HELICOBACTER INFECTION
  4. CLARITHROMYCIN [Suspect]
     Indication: PROPHYLAXIS
  5. LANSOPRAZOLE [Suspect]
     Indication: GASTRIC ULCER
  6. AMOXICILLIN [Suspect]
     Indication: PROPHYLAXIS
  7. LANSOPRAZOLE [Suspect]
     Indication: HELICOBACTER INFECTION
  8. AMOXICILLIN [Suspect]
     Indication: GASTRIC ULCER
  9. LANSOPRAZOLE [Suspect]
     Indication: PROPHYLAXIS

REACTIONS (2)
  - ORGANISING PNEUMONIA [None]
  - LUNG DISORDER [None]
